FAERS Safety Report 9053980 (Version 2)
Quarter: 2013Q2

REPORT INFORMATION
  Report Type: Spontaneous
  Country: CN (occurrence: CN)
  Receive Date: 20130208
  Receipt Date: 20130424
  Transmission Date: 20140414
  Serious: Yes (Other)
  Sender: FDA-Public Use
  Company Number: PHHY2013CN009617

PATIENT
  Age: 48 Year
  Sex: Female

DRUGS (1)
  1. ZOLEDRONIC ACID [Suspect]
     Indication: HYPERCALCAEMIA
     Dosage: 4 MG, PER 4 WEEKS
     Route: 041

REACTIONS (9)
  - Osteonecrosis of jaw [Unknown]
  - Soft tissue inflammation [Unknown]
  - Haemorrhage [Unknown]
  - Swelling [Unknown]
  - Primary sequestrum [Unknown]
  - Jaw disorder [Unknown]
  - Pain in jaw [Recovered/Resolved]
  - Erythema [Unknown]
  - Gingival swelling [Recovered/Resolved]
